FAERS Safety Report 16696658 (Version 2)
Quarter: 2019Q4

REPORT INFORMATION
  Report Type: Report from Study
  Country: CA (occurrence: CA)
  Receive Date: 20190813
  Receipt Date: 20191203
  Transmission Date: 20200122
  Serious: Yes (Hospitalization, Disabling)
  Sender: FDA-Public Use
  Company Number: CA-JNJFOC-20180818000

PATIENT
  Age: 39 Year
  Sex: Male
  Weight: 64 kg

DRUGS (2)
  1. ALCOHOL. [Suspect]
     Active Substance: ALCOHOL
     Indication: PRODUCT USED FOR UNKNOWN INDICATION
     Route: 065
  2. REMICADE [Suspect]
     Active Substance: INFLIXIMAB
     Indication: CROHN^S DISEASE
     Dosage: STRENGTH = 100 MG
     Route: 042
     Dates: start: 20110725

REACTIONS (12)
  - Fracture [Unknown]
  - Weight decreased [Not Recovered/Not Resolved]
  - Spinal cord injury [Unknown]
  - Spinal fracture [Not Recovered/Not Resolved]
  - Large intestine perforation [Unknown]
  - Road traffic accident [Not Recovered/Not Resolved]
  - Alcohol poisoning [Not Recovered/Not Resolved]
  - Frequent bowel movements [Unknown]
  - Paraplegia [Recovered/Resolved with Sequelae]
  - Splenectomy [Unknown]
  - Fall [Unknown]
  - Pelvic fracture [Recovering/Resolving]

NARRATIVE: CASE EVENT DATE: 20180709
